FAERS Safety Report 13978004 (Version 3)
Quarter: 2018Q2

REPORT INFORMATION
  Report Type: Report from Study
  Country: US (occurrence: US)
  Receive Date: 20170915
  Receipt Date: 20180426
  Transmission Date: 20180711
  Serious: Yes (Death, Hospitalization)
  Sender: FDA-Public Use
  Company Number: US-ACTELION-A-NJ2017-153595

PATIENT
  Age: 63 Year
  Sex: Female
  Weight: 44.9 kg

DRUGS (13)
  1. NEXIUM [Concomitant]
     Active Substance: ESOMEPRAZOLE MAGNESIUM
     Dosage: UNK, QD
  2. UPTRAVI [Suspect]
     Active Substance: SELEXIPAG
     Indication: PULMONARY ARTERIAL HYPERTENSION
     Dosage: 800 MCG, BID
     Route: 048
  3. UPTRAVI [Suspect]
     Active Substance: SELEXIPAG
     Dosage: 1600 MCG, BID
     Route: 048
  4. OXYGEN. [Concomitant]
     Active Substance: OXYGEN
  5. ADVAIR HFA [Concomitant]
     Active Substance: FLUTICASONE PROPIONATE\SALMETEROL XINAFOATE
     Dosage: UNK, BID
  6. FORTEROL [Concomitant]
     Dosage: UNK, QD
  7. OPSUMIT [Suspect]
     Active Substance: MACITENTAN
     Indication: PULMONARY ARTERIAL HYPERTENSION
     Dosage: 10 MG, QD
     Route: 048
     Dates: end: 201705
  8. OPSUMIT [Suspect]
     Active Substance: MACITENTAN
     Dosage: 10 MG, QD
     Route: 048
     Dates: end: 201709
  9. UPTRAVI [Suspect]
     Active Substance: SELEXIPAG
     Dosage: 1000 MCG, BID
     Route: 048
  10. AMLODIPINE [Concomitant]
     Active Substance: AMLODIPINE BESYLATE
     Dosage: UNK, QD
  11. OPSUMIT [Suspect]
     Active Substance: MACITENTAN
     Dosage: 10 MG, QD
     Route: 048
     Dates: end: 20180318
  12. LASIX [Concomitant]
     Active Substance: FUROSEMIDE
     Dosage: 40 MG, BID
  13. ADEMPAS [Concomitant]
     Active Substance: RIOCIGUAT

REACTIONS (15)
  - Disease progression [Recovering/Resolving]
  - Ascites [Recovering/Resolving]
  - Dizziness [Unknown]
  - Hypersensitivity [Unknown]
  - Fatigue [Unknown]
  - Pulmonary arterial hypertension [Fatal]
  - Constipation [Unknown]
  - Pericardial effusion [Recovering/Resolving]
  - Hypotension [Unknown]
  - Cardiac failure congestive [Recovering/Resolving]
  - Dyspnoea [Unknown]
  - Gastrointestinal obstruction [Fatal]
  - Fluid overload [Recovering/Resolving]
  - Drug dose omission [Unknown]
  - Oedema peripheral [Recovering/Resolving]

NARRATIVE: CASE EVENT DATE: 20170502
